FAERS Safety Report 5426190-X (Version None)
Quarter: 2007Q3

REPORT INFORMATION
  Report Type: 
  Country: None (occurrence: None)
  Receive Date: 20070827
  Receipt Date: 20070822
  Transmission Date: 20080115
  Serious: Yes (Hospitalization)
  Sender: FDA-Public Use
  Company Number: A0674738A

PATIENT
  Age: 52 Year
  Sex: Female

DRUGS (3)
  1. LAMICTAL [Suspect]
     Indication: BIPOLAR DISORDER
     Route: 048
     Dates: start: 20030101
  2. FOSAMAX [Concomitant]
  3. CLORAZEPATE [Concomitant]

REACTIONS (5)
  - ABNORMAL BEHAVIOUR [None]
  - EMOTIONAL DISORDER [None]
  - INTENTIONAL SELF-INJURY [None]
  - OVERDOSE [None]
  - SUICIDE ATTEMPT [None]
